FAERS Safety Report 20962865 (Version 1)
Quarter: 2022Q2

REPORT INFORMATION
  Report Type: Spontaneous
  Country: US (occurrence: US)
  Receive Date: 20220615
  Receipt Date: 20220615
  Transmission Date: 20220721
  Serious: No
  Sender: FDA-Public Use
  Company Number: US-KARYOPHARM-2022KPT000562

PATIENT

DRUGS (15)
  1. XPOVIO [Suspect]
     Active Substance: SELINEXOR
     Indication: Plasma cell myeloma
     Dosage: 100 MG, WEEKLY
     Route: 048
     Dates: start: 202204, end: 202205
  2. BACTRIM [Concomitant]
     Active Substance: SULFAMETHOXAZOLE\TRIMETHOPRIM
  3. DEXAMETHASONE [Concomitant]
     Active Substance: DEXAMETHASONE
  4. LOSARTAN [Concomitant]
     Active Substance: LOSARTAN
  5. MAXZIDE [Concomitant]
     Active Substance: HYDROCHLOROTHIAZIDE\TRIAMTERENE
  6. MELOXICAM [Concomitant]
     Active Substance: MELOXICAM
  7. METOPROLOL [Concomitant]
     Active Substance: METOPROLOL
  8. MORPHINE SULFATE [Concomitant]
     Active Substance: MORPHINE SULFATE
  9. NORCO [Concomitant]
     Active Substance: ACETAMINOPHEN\HYDROCODONE BITARTRATE
  10. SOTALOL [Concomitant]
     Active Substance: SOTALOL
  11. TRAMADOL [Concomitant]
     Active Substance: TRAMADOL
  12. ZETIA [Concomitant]
     Active Substance: EZETIMIBE
  13. ZOFRAN [Concomitant]
     Active Substance: ONDANSETRON HYDROCHLORIDE
  14. ZOMETA [Concomitant]
     Active Substance: ZOLEDRONIC ACID
  15. ACYCLOVIR [Concomitant]
     Active Substance: ACYCLOVIR

REACTIONS (4)
  - General physical health deterioration [Recovering/Resolving]
  - White blood cell count decreased [Not Recovered/Not Resolved]
  - Anaemia [Recovering/Resolving]
  - Platelet count decreased [Not Recovered/Not Resolved]

NARRATIVE: CASE EVENT DATE: 20220501
